FAERS Safety Report 8486856-4 (Version None)
Quarter: 2012Q3

REPORT INFORMATION
  Report Type: 
  Country: None (occurrence: None)
  Receive Date: 20120704
  Receipt Date: 20120625
  Transmission Date: 20120928
  Serious: Yes (Hospitalization)
  Sender: FDA-Public Use
  Company Number: JP-AMGEN-JPNCT2012024555

PATIENT
  Age: 63 Year
  Sex: Male
  Weight: 57 kg

DRUGS (5)
  1. IRINOTECAN HCL [Concomitant]
     Indication: COLORECTAL CANCER
     Route: 041
     Dates: start: 20110906
  2. PANITUMUMAB [Suspect]
     Dosage: 300 MG, QWK
     Route: 041
     Dates: start: 20120117, end: 20120326
  3. PANITUMUMAB [Suspect]
     Indication: COLORECTAL CANCER
     Dosage: 360 MG, Q2WK
     Route: 041
     Dates: start: 20110906, end: 20110906
  4. PANITUMUMAB [Suspect]
     Dosage: 300 MG, QWK
     Route: 041
     Dates: start: 20111213, end: 20111213
  5. PANITUMUMAB [Suspect]
     Dosage: 300 MG, QWK
     Route: 041
     Dates: start: 20120507

REACTIONS (2)
  - HYPOMAGNESAEMIA [None]
  - MECHANICAL ILEUS [None]
